FAERS Safety Report 6833630-8 (Version None)
Quarter: 2010Q3

REPORT INFORMATION
  Report Type: 
  Country: None (occurrence: None)
  Receive Date: 20100712
  Receipt Date: 20070329
  Transmission Date: 20110219
  Serious: No
  Sender: FDA-Public Use
  Company Number: US-PFIZER INC-2007026444

PATIENT
  Sex: Female
  Weight: 81.19 kg

DRUGS (5)
  1. CHANTIX [Suspect]
     Indication: SMOKING CESSATION THERAPY
     Dates: start: 20070301
  2. CARISOPRODOL [Concomitant]
  3. TRILISATE [Concomitant]
  4. TYLENOL W/ CODEINE NO. 3 [Concomitant]
  5. ALBUTEROL SULFATE [Concomitant]

REACTIONS (1)
  - NAUSEA [None]
